FAERS Safety Report 17858557 (Version 2)
Quarter: 2020Q2

REPORT INFORMATION
  Report Type: Report from Study
  Country: None (occurrence: US)
  Receive Date: 20200604
  Receipt Date: 20200605
  Transmission Date: 20200714
  Serious: No
  Sender: FDA-Public Use
  Company Number: US-US WORLDMEDS, LLC-USW201910-001996

PATIENT
  Age: 60 Year
  Sex: Female
  Weight: 60.78 kg

DRUGS (21)
  1. METFORMIN [Concomitant]
     Active Substance: METFORMIN HYDROCHLORIDE
  2. CARBIDOPA/LEVODOPA [Concomitant]
     Active Substance: CARBIDOPA\LEVODOPA
  3. LITHIUM. [Concomitant]
     Active Substance: LITHIUM
  4. BACLOFEN. [Concomitant]
     Active Substance: BACLOFEN
  5. 5-MTHF [Concomitant]
  6. APOKYN [Suspect]
     Active Substance: APOMORPHINE HYDROCHLORIDE
     Indication: PARKINSON^S DISEASE
     Route: 058
     Dates: start: 20191017
  7. CLARITIN [Concomitant]
     Active Substance: LORATADINE
  8. N-ACETYL CYSTEINE [Concomitant]
     Active Substance: ACETYLCYSTEINE
  9. ACARBOSE. [Concomitant]
     Active Substance: ACARBOSE
  10. SELEGILINE [Concomitant]
     Active Substance: SELEGILINE
  11. PROGESTERONE. [Concomitant]
     Active Substance: PROGESTERONE
  12. CARBIDOPA/LEVODOPA [Concomitant]
     Active Substance: CARBIDOPA\LEVODOPA
  13. L-CYSTEINE [Concomitant]
     Active Substance: CYSTEINE
  14. MAGNESIUM L-THREONATE [Concomitant]
  15. DULOXETINE. [Concomitant]
     Active Substance: DULOXETINE
  16. ASA [Concomitant]
     Active Substance: ASPIRIN
  17. BRAIN OCTANE [Concomitant]
  18. NIACIN. [Concomitant]
     Active Substance: NIACIN
  19. VITAMIN D3 [Concomitant]
     Active Substance: CHOLECALCIFEROL
  20. AMANTADINE. [Concomitant]
     Active Substance: AMANTADINE HYDROCHLORIDE
  21. ENTACAPONE. [Concomitant]
     Active Substance: ENTACAPONE

REACTIONS (3)
  - Tension headache [Recovered/Resolved]
  - Nausea [Recovered/Resolved]
  - Dizziness [Recovered/Resolved]

NARRATIVE: CASE EVENT DATE: 20191017
